FAERS Safety Report 8952298 (Version 1)
Quarter: 2012Q4

REPORT INFORMATION
  Report Type: 
  Country: US (occurrence: US)
  Receive Date: 20121205
  Receipt Date: 20121205
  Transmission Date: 20130627
  Serious: No
  Sender: FDA-Public Use
  Company Number: US-009507513-1212USA001117

PATIENT
  Age: 77 None
  Sex: Female

DRUGS (13)
  1. ASMANEX TWISTHALER [Suspect]
     Indication: ASTHMA
     Dosage: 220 Microgram, bid
  2. SINGULAIR [Concomitant]
  3. HYDROCODONE [Concomitant]
  4. ACETAMINOPHEN [Concomitant]
  5. IRON (UNSPECIFIED) [Concomitant]
  6. LASIX (FUROSEMIDE) [Concomitant]
  7. LISINOPRIL [Concomitant]
  8. LORATADINE [Concomitant]
  9. MELOXICAM [Concomitant]
  10. OMEGA-3 [Concomitant]
  11. PROAIR (ALBUTEROL SULFATE) [Concomitant]
  12. ZINC SULFATE [Concomitant]
  13. XALATAN [Concomitant]

REACTIONS (4)
  - Dyspnoea [Recovering/Resolving]
  - Wheezing [Recovering/Resolving]
  - Drug dose omission [Unknown]
  - Product quality issue [Unknown]
